FAERS Safety Report 23640433 (Version 1)
Quarter: 2024Q1

REPORT INFORMATION
  Report Type: Report from Study
  Country: US (occurrence: US)
  Receive Date: 20240317
  Receipt Date: 20240317
  Transmission Date: 20240409
  Serious: Yes (Other)
  Sender: FDA-Public Use
  Company Number: US-JNJFOC-20240327272

PATIENT
  Age: 75 Year
  Sex: Female

DRUGS (1)
  1. SPRAVATO [Suspect]
     Active Substance: ESKETAMINE
     Indication: Product used for unknown indication
     Dosage: TREATMENT STARTED ON UNSPECIFIED DATE. PATIENT HAD TREATMENT ON 06/MAR/2024

REACTIONS (2)
  - Foot operation [Unknown]
  - Anxiety [Unknown]

NARRATIVE: CASE EVENT DATE: 20240304
